FAERS Safety Report 19993060 (Version 1)
Quarter: 2021Q4

REPORT INFORMATION
  Report Type: Spontaneous
  Country: US (occurrence: US)
  Receive Date: 20211025
  Receipt Date: 20211025
  Transmission Date: 20220303
  Serious: No
  Sender: FDA-Public Use
  Company Number: US-ABBVIE-21K-163-3955500-00

PATIENT
  Sex: Female

DRUGS (5)
  1. LUPRON [Suspect]
     Active Substance: LEUPROLIDE ACETATE
     Indication: Menopause
     Dosage: CALLER THINKS 3.7MG DOSE INJECTION ADMINISTERED IN HEALTHCARE FACILITY
     Route: 065
     Dates: start: 201704, end: 202010
  2. IBRANCE [Suspect]
     Active Substance: PALBOCICLIB
     Indication: Neoplasm malignant
     Dosage: 125MG TABLET ONCE DAILY FOR 21 DAYS ON THEN 7 DAYS OFF, DOSE DECREASED TO 100MG.
     Route: 048
     Dates: start: 2017
  3. IBRANCE [Suspect]
     Active Substance: PALBOCICLIB
     Dosage: 100MG TABLET ONCE DAILY FOR 21 DAYS ON THEN 7 DAYS OFF
     Route: 048
     Dates: start: 20210430
  4. LETROZOLE [Concomitant]
     Active Substance: LETROZOLE
     Indication: Neoplasm malignant
     Dosage: 2.5MG TABLET BY MOUTH EVERY DAY WITH NO INTERRUPTION
     Route: 048
     Dates: start: 2017
  5. XGEVA [Concomitant]
     Active Substance: DENOSUMAB
     Indication: Product used for unknown indication
     Dosage: UNKNOWN DOSE VIA INJECTION EVERY 3 MONTHS
     Dates: start: 2017

REACTIONS (10)
  - Malaise [Recovering/Resolving]
  - Head discomfort [Recovering/Resolving]
  - Toothache [Recovering/Resolving]
  - Arthralgia [Recovering/Resolving]
  - Hot flush [Recovering/Resolving]
  - Weight increased [Recovering/Resolving]
  - Nausea [Recovering/Resolving]
  - Injection site pain [Recovering/Resolving]
  - Amenorrhoea [Recovering/Resolving]
  - Energy increased [Recovering/Resolving]

NARRATIVE: CASE EVENT DATE: 20170101
